FAERS Safety Report 15515700 (Version 1)
Quarter: 2018Q4

REPORT INFORMATION
  Report Type: Spontaneous
  Country: FR (occurrence: FR)
  Receive Date: 20181017
  Receipt Date: 20181017
  Transmission Date: 20190205
  Serious: Yes (Other)
  Sender: FDA-Public Use
  Company Number: FR-ROCHE-2200531

PATIENT
  Age: 26 Year
  Sex: Male

DRUGS (4)
  1. VALIUM [Suspect]
     Active Substance: DIAZEPAM
     Indication: ACUTE PSYCHOSIS
     Route: 048
     Dates: start: 20180801, end: 20180813
  2. IMOVANE [Concomitant]
     Active Substance: ZOPICLONE
     Route: 065
     Dates: start: 20180801
  3. ZYPREXA [Suspect]
     Active Substance: OLANZAPINE
     Indication: ACUTE PSYCHOSIS
     Route: 048
     Dates: start: 20180802, end: 20180813
  4. LOXAPAC [Suspect]
     Active Substance: LOXAPINE
     Indication: ACUTE PSYCHOSIS
     Route: 048
     Dates: start: 20180802, end: 20180813

REACTIONS (1)
  - Hepatocellular injury [Recovered/Resolved]

NARRATIVE: CASE EVENT DATE: 201808
